FAERS Safety Report 9066619 (Version 1)
Quarter: 2013Q1

REPORT INFORMATION
  Report Type: Report from Study
  Country: US (occurrence: US)
  Receive Date: 20130131
  Receipt Date: 20130131
  Transmission Date: 20140127
  Serious: No
  Sender: FDA-Public Use
  Company Number: US-ABBOTT-12P-163-1015778-00

PATIENT
  Age: 31 None
  Sex: Female
  Weight: 102.15 kg

DRUGS (6)
  1. HUMIRA [Suspect]
     Indication: CROHN^S DISEASE
     Dosage: LOADING DOSE ONLY
     Dates: start: 20121120, end: 20121120
  2. SYNTHROID [Concomitant]
     Indication: HYPOTHYROIDISM
  3. POTASSIUM [Concomitant]
     Indication: PRODUCT USED FOR UNKNOWN INDICATION
  4. IRON SUPPLEMENT [Concomitant]
     Indication: PRODUCT USED FOR UNKNOWN INDICATION
  5. LEXAPRO [Concomitant]
     Indication: PRODUCT USED FOR UNKNOWN INDICATION
  6. ATIVAN [Concomitant]
     Indication: ANXIETY

REACTIONS (4)
  - Nausea [Unknown]
  - Injection site bruising [Recovering/Resolving]
  - Headache [Unknown]
  - Influenza like illness [Unknown]
